FAERS Safety Report 11120085 (Version 3)
Quarter: 2015Q2

REPORT INFORMATION
  Report Type: Spontaneous
  Country: US (occurrence: US)
  Receive Date: 20150518
  Receipt Date: 20150616
  Transmission Date: 20150821
  Serious: Yes (Hospitalization, Other)
  Sender: FDA-Public Use
  Company Number: US-009507513-1202USA02285

PATIENT
  Sex: Female
  Weight: 65.76 kg

DRUGS (3)
  1. FOSAMAX [Suspect]
     Active Substance: ALENDRONATE SODIUM
     Indication: BONE DENSITY DECREASED
     Dosage: 70 MG, QW
     Route: 048
     Dates: start: 20040617, end: 20080110
  2. ALENDRONATE SODIUM. [Suspect]
     Active Substance: ALENDRONATE SODIUM
     Indication: BONE DENSITY DECREASED
     Dosage: 70 MG, QW
     Route: 048
     Dates: start: 20080111, end: 20100823
  3. FOSAMAX [Suspect]
     Active Substance: ALENDRONATE SODIUM
     Indication: BONE DENSITY DECREASED
     Route: 048

REACTIONS (21)
  - Thrombophlebitis superficial [Unknown]
  - Vitamin D deficiency [Unknown]
  - Hypercoagulation [Not Recovered/Not Resolved]
  - Cholecystectomy [Unknown]
  - Gastrooesophageal reflux disease [Unknown]
  - Femur fracture [Unknown]
  - Intramedullary rod insertion [Unknown]
  - Osteoporosis [Unknown]
  - Hypertriglyceridaemia [Unknown]
  - Appendicectomy [Unknown]
  - Hysterectomy [Unknown]
  - Cataract operation [Unknown]
  - Orthostatic hypotension [Recovering/Resolving]
  - Deep vein thrombosis [Unknown]
  - Osteoarthritis [Unknown]
  - Osteoporosis [Unknown]
  - Post procedural haematoma [Recovering/Resolving]
  - Cataract operation [Unknown]
  - Cystocele repair [Unknown]
  - Rectocele repair [Unknown]
  - Haemorrhagic anaemia [Recovering/Resolving]

NARRATIVE: CASE EVENT DATE: 2005
